FAERS Safety Report 5477727-6 (Version None)
Quarter: 2007Q4

REPORT INFORMATION
  Report Type: 
  Country: None (occurrence: None)
  Receive Date: 20071002
  Receipt Date: 20070919
  Transmission Date: 20080405
  Serious: Yes (Other)
  Sender: FDA-Public Use
  Company Number: GXKR2007GB05755

PATIENT
  Age: 16 Year
  Sex: Female

DRUGS (1)
  1. LORATADINE [Suspect]
     Dosage: 10 MG, ONCE/SINGLE, ORAL
     Route: 048
     Dates: start: 20070608, end: 20070608

REACTIONS (4)
  - CIRCULATORY COLLAPSE [None]
  - CONVULSION [None]
  - LOSS OF CONSCIOUSNESS [None]
  - PHARMACEUTICAL PRODUCT COMPLAINT [None]
